FAERS Safety Report 22365839 (Version 1)
Quarter: 2023Q2

REPORT INFORMATION
  Report Type: Report from Study
  Country: US (occurrence: US)
  Receive Date: 20230525
  Receipt Date: 20230525
  Transmission Date: 20230721
  Serious: Yes (Other)
  Sender: FDA-Public Use
  Company Number: US-002147023-NVSC2023US114350

PATIENT
  Sex: Male
  Weight: 124.72 kg

DRUGS (2)
  1. CLOBETASOL [Suspect]
     Active Substance: CLOBETASOL
     Indication: Psoriasis
     Dosage: UNK
     Route: 065
  2. KETOCONAZOLE [Suspect]
     Active Substance: KETOCONAZOLE
     Indication: Psoriasis
     Dosage: UNK
     Route: 065

REACTIONS (18)
  - Basal cell carcinoma [Unknown]
  - Haemorrhage [Unknown]
  - Dermoid cyst [Unknown]
  - Pigmentation disorder [Unknown]
  - Actinic keratosis [Unknown]
  - Polymorphic light eruption [Unknown]
  - Cyst [Unknown]
  - Psoriasis [Not Recovered/Not Resolved]
  - Pruritus [Unknown]
  - Erythema [Unknown]
  - Skin irritation [Unknown]
  - Skin lesion [Unknown]
  - Skin hyperpigmentation [Unknown]
  - Rash pruritic [Unknown]
  - Rash erythematous [Unknown]
  - Papule [Unknown]
  - Drug ineffective [Unknown]
  - Product use in unapproved indication [Unknown]
